FAERS Safety Report 6137578-6 (Version None)
Quarter: 2009Q1

REPORT INFORMATION
  Report Type: 
  Country: None (occurrence: None)
  Receive Date: 20090327
  Receipt Date: 20090327
  Transmission Date: 20090719
  Serious: Yes (Life-Threatening, Hospitalization)
  Sender: FDA-Public Use
  Company Number: None

PATIENT
  Sex: Male
  Weight: 68.0396 kg

DRUGS (1)
  1. ZOLPIDEM [Suspect]
     Indication: INSOMNIA
     Dosage: 10 MG 1 BEDTIME 1 / NIGHT ORAL
     Route: 048
     Dates: start: 20090304, end: 20090305

REACTIONS (2)
  - AMNESIA [None]
  - UNEVALUABLE EVENT [None]
